FAERS Safety Report 6818026-7 (Version None)
Quarter: 2010Q3

REPORT INFORMATION
  Report Type: 
  Country: None (occurrence: None)
  Receive Date: 20100706
  Receipt Date: 20100503
  Transmission Date: 20110219
  Serious: Yes (Hospitalization, Other)
  Sender: FDA-Public Use
  Company Number: US-PFIZER INC-2010039133

PATIENT
  Sex: Female
  Weight: 58 kg

DRUGS (8)
  1. DETROL LA [Suspect]
     Indication: URINARY INCONTINENCE
     Dosage: 4 MG, 1X/DAY
     Route: 048
  2. TOPAMAX [Concomitant]
     Indication: MIGRAINE WITH AURA
     Dosage: 25 MG, 2X/DAY
     Route: 048
  3. ALENDRONATE SODIUM [Concomitant]
     Indication: OSTEOPOROSIS
     Dosage: 70 MG, WEEKLY
  4. SIMVASTATIN [Concomitant]
     Dosage: 20 MG, UNK
  5. LEVOXYL [Concomitant]
     Indication: THYROID DISORDER
     Dosage: 0.05 MG, 1X/DAY
  6. PREMARIN [Concomitant]
     Indication: VULVOVAGINAL DRYNESS
     Dosage: UNK
  7. ASPIRIN [Concomitant]
     Indication: MITRAL VALVE REPLACEMENT
     Dosage: 81 MG, 1X/DAY
  8. METOPROLOL [Concomitant]
     Indication: HYPERTENSION
     Dosage: UNK

REACTIONS (5)
  - HYPERTENSION [None]
  - MITRAL VALVE REPLACEMENT [None]
  - THYROID DISORDER [None]
  - URINARY TRACT OPERATION [None]
  - VULVOVAGINAL DRYNESS [None]
